FAERS Safety Report 4458873-2 (Version None)
Quarter: 2004Q3

REPORT INFORMATION
  Report Type: 
  Country: None (occurrence: None)
  Receive Date: 20040922
  Receipt Date: 20040922
  Transmission Date: 20050211
  Serious: Yes (Hospitalization)
  Sender: FDA-Public Use
  Company Number: None

PATIENT
  Age: 92 Year
  Sex: Female
  Weight: 60.7 kg

DRUGS (7)
  1. LOVENOX [Suspect]
     Indication: DEEP VENOUS THROMBOSIS PROPHYLAXIS
     Dosage: 40 MG SQ
     Dates: start: 20040722, end: 20040805
  2. ASPIRIN [Concomitant]
  3. PATANOL [Concomitant]
  4. GLUCOTROL XL [Concomitant]
  5. TOPROL-XL [Concomitant]
  6. COLACE [Concomitant]
  7. VICODIN [Concomitant]

REACTIONS (2)
  - HAEMATEMESIS [None]
  - RECTAL HAEMORRHAGE [None]
